FAERS Safety Report 24271253 (Version 2)
Quarter: 2025Q2

REPORT INFORMATION
  Report Type: Spontaneous
  Country: US (occurrence: US)
  Receive Date: 20240901
  Receipt Date: 20250616
  Transmission Date: 20250717
  Serious: No
  Sender: RECKITT BENCKISER
  Company Number: US-PROD-AS2-212756134-RB-087262-2024

PATIENT
  Age: 42 Year
  Sex: Female

DRUGS (7)
  1. MUCINEX [Suspect]
     Active Substance: GUAIFENESIN
     Indication: Product used for unknown indication
     Route: 065
  2. MUCINEX [Suspect]
     Active Substance: GUAIFENESIN
     Indication: Rhinorrhoea
  3. MUCINEX [Suspect]
     Active Substance: GUAIFENESIN
     Indication: Pyrexia
  4. MUCINEX [Suspect]
     Active Substance: GUAIFENESIN
     Indication: Respiratory tract congestion
  5. MUCINEX [Suspect]
     Active Substance: GUAIFENESIN
     Indication: Productive cough
  6. MOTRIN [Suspect]
     Active Substance: IBUPROFEN
     Indication: Product used for unknown indication
     Route: 065
  7. VITAMIN B12 [Concomitant]
     Active Substance: CYANOCOBALAMIN
     Indication: Product used for unknown indication
     Route: 065

REACTIONS (5)
  - Alopecia [Unknown]
  - Rhinorrhoea [Unknown]
  - Condition aggravated [Unknown]
  - Respiratory tract congestion [Unknown]
  - Secretion discharge [Unknown]
